FAERS Safety Report 19176930 (Version 1)
Quarter: 2021Q2

REPORT INFORMATION
  Report Type: Report from Study
  Country: US (occurrence: US)
  Receive Date: 20210424
  Receipt Date: 20210424
  Transmission Date: 20210717
  Serious: Yes (Other)
  Sender: FDA-Public Use
  Company Number: US-TEVA-2021-US-1903189

PATIENT
  Age: 46 Year
  Sex: Female

DRUGS (3)
  1. COPAXONE [Suspect]
     Active Substance: GLATIRAMER ACETATE
     Dosage: FORM STRENGTH?UNKNOWN
     Route: 065
     Dates: start: 2016
  2. COPAXONE [Suspect]
     Active Substance: GLATIRAMER ACETATE
     Dosage: FORM STRENGTH?UNKNOWN
     Route: 065
     Dates: start: 2018
  3. COPAXONE [Suspect]
     Active Substance: GLATIRAMER ACETATE
     Dosage: FORM STRENGTH?UNKNOWN
     Route: 065
     Dates: start: 2014

REACTIONS (6)
  - Alopecia [Unknown]
  - Skin haemorrhage [Unknown]
  - Anaphylactic shock [Unknown]
  - Lymphadenopathy [Unknown]
  - Near death experience [Unknown]
  - Lymphoma [Unknown]

NARRATIVE: CASE EVENT DATE: 201812
